FAERS Safety Report 18169408 (Version 3)
Quarter: 2020Q4

REPORT INFORMATION
  Report Type: Report from Study
  Country: None (occurrence: US)
  Receive Date: 20200819
  Receipt Date: 20201020
  Transmission Date: 20210113
  Serious: Yes (Other)
  Sender: FDA-Public Use
  Company Number: US-INSMED, INC.-US-INS-19-03874

PATIENT
  Age: 72 Year
  Sex: Female

DRUGS (3)
  1. ARIKAYCE [Suspect]
     Active Substance: AMIKACIN
     Route: 055
     Dates: end: 202005
  2. ARIKAYCE [Suspect]
     Active Substance: AMIKACIN
     Indication: MYCOBACTERIAL INFECTION
     Route: 055
     Dates: start: 2019
  3. ARIKAYCE [Suspect]
     Active Substance: AMIKACIN
     Route: 055
     Dates: start: 2020

REACTIONS (10)
  - Gastrointestinal disorder [Unknown]
  - Musculoskeletal chest pain [Unknown]
  - Constipation [Unknown]
  - Vertigo [Unknown]
  - Dysphonia [Unknown]
  - Off label use [Unknown]
  - Cough [Recovering/Resolving]
  - Decreased appetite [Unknown]
  - Rib fracture [Recovering/Resolving]
  - Therapy interrupted [Unknown]

NARRATIVE: CASE EVENT DATE: 2020
